FAERS Safety Report 25550031 (Version 2)
Quarter: 2025Q3

REPORT INFORMATION
  Report Type: Spontaneous
  Country: CN (occurrence: CN)
  Receive Date: 20250714
  Receipt Date: 20250717
  Transmission Date: 20251021
  Serious: Yes (Other)
  Sender: JOHNSON AND JOHNSON
  Company Number: CN-JNJFOC-20250714079

PATIENT

DRUGS (1)
  1. ERLEADA [Suspect]
     Active Substance: APALUTAMIDE
     Indication: Product used for unknown indication
     Route: 048

REACTIONS (7)
  - Haematochezia [Unknown]
  - Hyperpyrexia [Unknown]
  - Oesophageal ulcer [Unknown]
  - Anal ulcer [Unknown]
  - Adverse drug reaction [Unknown]
  - Rash [Unknown]
  - Mouth ulceration [Unknown]
